FAERS Safety Report 17077098 (Version 1)
Quarter: 2019Q4

REPORT INFORMATION
  Report Type: Spontaneous
  Country: CO (occurrence: CO)
  Receive Date: 20191126
  Receipt Date: 20191126
  Transmission Date: 20200122
  Serious: Yes (Hospitalization, Other)
  Sender: FDA-Public Use
  Company Number: CO-BIOMARINAP-CO-2019-127093

PATIENT

DRUGS (1)
  1. NAGLAZYME [Suspect]
     Active Substance: GALSULFASE
     Indication: MUCOPOLYSACCHARIDOSIS VI
     Dosage: 25 MILLIGRAM
     Route: 065
     Dates: start: 20131101

REACTIONS (3)
  - Laryngeal injury [Unknown]
  - Neoplasm [Unknown]
  - Laryngeal inflammation [Unknown]

NARRATIVE: CASE EVENT DATE: 20191119
